FAERS Safety Report 25521307 (Version 1)
Quarter: 2025Q3

REPORT INFORMATION
  Report Type: Spontaneous
  Country: CN (occurrence: CN)
  Receive Date: 20250705
  Receipt Date: 20250705
  Transmission Date: 20251021
  Serious: Yes (Other)
  Sender: JOHNSON AND JOHNSON
  Company Number: CN-JNJFOC-20250702045

PATIENT
  Age: 16 Year
  Sex: Male

DRUGS (4)
  1. RISPERDAL [Suspect]
     Active Substance: RISPERIDONE
     Indication: Psychiatric symptom
     Route: 048
     Dates: start: 20250530
  2. RISPERDAL [Suspect]
     Active Substance: RISPERIDONE
     Route: 048
     Dates: start: 20250613
  3. SERTRALINE HYDROCHLORIDE [Concomitant]
     Active Substance: SERTRALINE HYDROCHLORIDE
     Indication: Depressed mood
     Route: 065
     Dates: start: 20250613
  4. SERTRALINE HYDROCHLORIDE [Concomitant]
     Active Substance: SERTRALINE HYDROCHLORIDE
     Route: 065
     Dates: start: 20250530

REACTIONS (4)
  - Hallucination, auditory [Unknown]
  - Disturbance in social behaviour [Unknown]
  - Depressed mood [Unknown]
  - Drug ineffective [Unknown]
